FAERS Safety Report 6449801-9 (Version None)
Quarter: 2009Q4

REPORT INFORMATION
  Report Type: 
  Country: None (occurrence: None)
  Receive Date: 20091120
  Receipt Date: 20090310
  Transmission Date: 20100525
  Serious: Yes (Hospitalization)
  Sender: FDA-Public Use
  Company Number: US-AMGEN-QUU337672

PATIENT
  Sex: Female

DRUGS (3)
  1. ENBREL [Suspect]
     Indication: RHEUMATOID ARTHRITIS
     Route: 058
     Dates: start: 20020122
  2. METHOTREXATE [Concomitant]
     Route: 048
  3. FISH OIL [Concomitant]
     Route: 048

REACTIONS (11)
  - ARTHRALGIA [None]
  - ASTHENIA [None]
  - CATARACT [None]
  - DIARRHOEA [None]
  - DYSPNOEA [None]
  - EYE PAIN [None]
  - HEART RATE IRREGULAR [None]
  - JOINT EFFUSION [None]
  - JOINT SWELLING [None]
  - VISION BLURRED [None]
  - VOMITING [None]
